FAERS Safety Report 8589665-0 (Version None)
Quarter: 2012Q3

REPORT INFORMATION
  Report Type: 
  Country: None (occurrence: None)
  Receive Date: 20120813
  Receipt Date: 20120731
  Transmission Date: 20120928
  Serious: Yes (Other)
  Sender: FDA-Public Use
  Company Number: US-ROCHE-1092763

PATIENT
  Age: 54 Year
  Sex: Female

DRUGS (6)
  1. DOCETAXEL [Concomitant]
     Indication: BREAST CANCER METASTATIC
     Dates: end: 20081101
  2. CAPECITABINE [Suspect]
     Indication: BREAST CANCER METASTATIC
     Route: 048
     Dates: start: 20090301
  3. ADRIAMYCIN PFS [Concomitant]
     Indication: BREAST CANCER METASTATIC
     Dates: start: 20080301
  4. CAPECITABINE [Suspect]
     Dosage: DOSE REDUCED
     Route: 048
  5. CYTOXAN [Concomitant]
     Indication: BREAST CANCER METASTATIC
     Dates: start: 20080301
  6. IXABEPILONE [Concomitant]
     Indication: BREAST CANCER METASTATIC
     Route: 042

REACTIONS (2)
  - SYSTEMIC LUPUS ERYTHEMATOSUS [None]
  - PALMAR-PLANTAR ERYTHRODYSAESTHESIA SYNDROME [None]
